FAERS Safety Report 24034170 (Version 1)
Quarter: 2024Q3

REPORT INFORMATION
  Report Type: Report from Study
  Country: ES (occurrence: ES)
  Receive Date: 20240701
  Receipt Date: 20240701
  Transmission Date: 20241017
  Serious: Yes (Life-Threatening, Hospitalization, Other)
  Sender: BRISTOL MYERS SQUIBB
  Company Number: None

PATIENT
  Age: 85 Year
  Sex: Male

DRUGS (2)
  1. IPILIMUMAB [Interacting]
     Active Substance: IPILIMUMAB
     Indication: Product used for unknown indication
     Dates: start: 20220407, end: 20220630
  2. NIVOLUMAB [Interacting]
     Active Substance: NIVOLUMAB
     Indication: Product used for unknown indication
     Dates: start: 20220407, end: 20221107

REACTIONS (2)
  - Immune-mediated enterocolitis [Recovered/Resolved]
  - Drug interaction [Unknown]

NARRATIVE: CASE EVENT DATE: 20220617
